FAERS Safety Report 4502399-4 (Version None)
Quarter: 2004Q4

REPORT INFORMATION
  Report Type: 
  Country: None (occurrence: None)
  Receive Date: 20041109
  Receipt Date: 20041026
  Transmission Date: 20050328
  Serious: Yes (Hospitalization)
  Sender: FDA-Public Use
  Company Number: 2003155701DE

PATIENT
  Age: 72 Year
  Sex: Male
  Weight: 82 kg

DRUGS (5)
  1. CABERGOLINE (CABERGOLINE) TABLET, 1-4MG [Suspect]
     Indication: RESTLESS LEGS SYNDROME
     Dosage: 2 MG/DAY, ORAL
     Route: 048
     Dates: start: 20030127
  2. LEVOTHYROXINE SODIUM [Suspect]
     Indication: PRIMARY HYPOTHYROIDISM
     Dates: start: 19960101
  3. LEVODOPA (LEVODOPA) [Suspect]
  4. VERAPAMIL [Suspect]
     Indication: HYPERTENSION
     Dates: start: 19910101
  5. LISINOPRIL [Suspect]
     Indication: HYPERTENSION
     Dates: start: 19910101

REACTIONS (4)
  - ARRHYTHMIA [None]
  - DIZZINESS [None]
  - HYPERTENSIVE HEART DISEASE [None]
  - PALPITATIONS [None]
